FAERS Safety Report 4476545-5 (Version None)
Quarter: 2004Q4

REPORT INFORMATION
  Report Type: 
  Country: None (occurrence: None)
  Receive Date: 20041013
  Receipt Date: 20040928
  Transmission Date: 20050328
  Serious: No
  Sender: FDA-Public Use
  Company Number: USA040876766

PATIENT
  Age: 65 Year
  Sex: Female

DRUGS (2)
  1. FORTEO [Suspect]
     Indication: OSTEOPOROSIS
     Dosage: 20 UG/1 DAY
     Dates: start: 20030331, end: 20040101
  2. CALCIUM [Concomitant]

REACTIONS (7)
  - CALCINOSIS [None]
  - DIABETES MELLITUS [None]
  - HYPERCALCAEMIA [None]
  - SKIN ULCER [None]
  - SWELLING [None]
  - TOE AMPUTATION [None]
  - WOUND SECRETION [None]
